FAERS Safety Report 20085923 (Version 5)
Quarter: 2022Q2

REPORT INFORMATION
  Report Type: Report from Study
  Country: RU (occurrence: RU)
  Receive Date: 20211118
  Receipt Date: 20220520
  Transmission Date: 20220721
  Serious: Yes (Life-Threatening, Hospitalization)
  Sender: FDA-Public Use
  Company Number: RU-ELI_LILLY_AND_COMPANY-US202110001688

PATIENT
  Age: 68 Year
  Sex: Male
  Weight: 58 kg

DRUGS (7)
  1. PEMETREXED [Suspect]
     Active Substance: PEMETREXED
     Indication: Non-small cell lung cancer
     Dosage: 500 MG/M2, OTHER (Q3W)
     Route: 042
     Dates: start: 20210714, end: 20210917
  2. PEMETREXED [Suspect]
     Active Substance: PEMETREXED
     Dosage: 375 MG/M2, OTHER (Q3W)
     Route: 042
     Dates: start: 20210928, end: 20210928
  3. PEMETREXED [Suspect]
     Active Substance: PEMETREXED
     Dosage: 250 MG/M2, OTHER (Q3W)
     Route: 042
     Dates: start: 20211027, end: 20211027
  4. CARBOPLATIN [Concomitant]
     Active Substance: CARBOPLATIN
     Indication: Non-small cell lung cancer
     Dosage: 5 AUC, Q3W
     Route: 042
     Dates: start: 20210714, end: 20210917
  5. CARBOPLATIN [Concomitant]
     Active Substance: CARBOPLATIN
     Dosage: 5 AUC (406MG), Q3W
     Route: 042
     Dates: start: 20210928, end: 20210928
  6. OMEPRAZOLE [Concomitant]
     Active Substance: OMEPRAZOLE
     Indication: Product used for unknown indication
     Dosage: UNK
     Dates: start: 2018
  7. DEXAMETHASONE [Concomitant]
     Active Substance: DEXAMETHASONE
     Indication: Product used for unknown indication
     Dosage: UNK
     Dates: start: 20210825, end: 20210828

REACTIONS (3)
  - Anaemia [Recovered/Resolved]
  - Anaemia [Recovered/Resolved]
  - Anaemia [Recovered/Resolved]

NARRATIVE: CASE EVENT DATE: 20210917
